FAERS Safety Report 6536957-2 (Version None)
Quarter: 2010Q1

REPORT INFORMATION
  Report Type: 
  Country: None (occurrence: None)
  Receive Date: 20100105
  Receipt Date: 20091221
  Transmission Date: 20100710
  Serious: Yes (Other)
  Sender: FDA-Public Use
  Company Number: 2009AP005126

PATIENT
  Age: 65 Year
  Sex: Female

DRUGS (3)
  1. ALENDRONATE SODIUM [Suspect]
     Dosage: 70 MG; QW
  2. CORTICOSTEROIDS (CORTICOSTEROIDS) [Concomitant]
  3. INSULIN (INSULIN) [Concomitant]

REACTIONS (1)
  - HYPOGLYCAEMIA [None]
